FAERS Safety Report 4569702-0 (Version None)
Quarter: 2005Q1

REPORT INFORMATION
  Report Type: 
  Country: None (occurrence: None)
  Receive Date: 20050201
  Receipt Date: 20050117
  Transmission Date: 20050727
  Serious: Yes (Other)
  Sender: FDA-Public Use
  Company Number: 2005015475

PATIENT
  Age: 70 Year
  Sex: Male

DRUGS (2)
  1. SILDENAFIL (SILDENAFIL) [Suspect]
     Indication: ILL-DEFINED DISORDER
     Dosage: (AS NECESSARY), ORAL
     Route: 048
  2. SIMVASTATIN [Concomitant]

REACTIONS (2)
  - CEREBROVASCULAR DISORDER [None]
  - DIZZINESS [None]
